FAERS Safety Report 13204466 (Version 1)
Quarter: 2017Q1

REPORT INFORMATION
  Report Type: Spontaneous
  Country: None (occurrence: FR)
  Receive Date: 20170209
  Receipt Date: 20170209
  Transmission Date: 20170428
  Serious: Yes (Hospitalization, Other)
  Sender: FDA-Public Use
  Company Number: FR-MEDAC PHARMA, INC.-1062926

PATIENT
  Age: 73 Year
  Sex: Female

DRUGS (1)
  1. METOJECT [Suspect]
     Active Substance: METHOTREXATE SODIUM
     Indication: RHEUMATOID ARTHRITIS
     Route: 058
     Dates: start: 2010, end: 2016

REACTIONS (4)
  - Diabetic metabolic decompensation [Unknown]
  - Pancytopenia [Recovered/Resolved]
  - Mucosal inflammation [Unknown]
  - Lung disorder [Unknown]

NARRATIVE: CASE EVENT DATE: 20161115
